FAERS Safety Report 7415514 (Version 2)
Quarter: 2020Q2

REPORT INFORMATION
  Report Type: Spontaneous
  Country: PT (occurrence: PT)
  Receive Date: 20100610
  Receipt Date: 20200502
  Transmission Date: 20200714
  Serious: Yes (Death, Hospitalization)
  Sender: FDA-Public Use
  Company Number: PT-ROCHE-632258

PATIENT
  Age: 57 Year
  Sex: Female
  Weight: 56 kg

DRUGS (11)
  1. DIAZEPAM. [Suspect]
     Active Substance: DIAZEPAM
     Indication: DEPRESSION
     Route: 065
  2. CYCLOPHOSPHAMIDE. [Concomitant]
     Active Substance: CYCLOPHOSPHAMIDE
     Dosage: DOSE: 500 M/M2, FREQUENCY: CYCLE OF 21/ 21 DAYS,
     Route: 042
     Dates: start: 200804, end: 200807
  3. DOCETAXEL. [Concomitant]
     Active Substance: DOCETAXEL
     Indication: BREAST CANCER
     Dosage: FREQUENCY: CYCLE OF 21/ 21 DAYS.
     Route: 042
     Dates: start: 200804, end: 200807
  4. ESTAZOLAM. [Suspect]
     Active Substance: ESTAZOLAM
     Indication: DEPRESSION
     Route: 065
  5. DOXORUBICIN [Suspect]
     Active Substance: DOXORUBICIN
     Indication: BREAST CANCER
     Dosage: FREQUENCY: CYCLE OF 21/ 21 DAYS.
     Route: 042
     Dates: start: 200804, end: 200807
  6. ATENOLOL. [Concomitant]
     Active Substance: ATENOLOL
     Indication: SUPRAVENTRICULAR EXTRASYSTOLES
     Route: 065
  7. PERINDOPRIL ARGININE [Concomitant]
     Active Substance: PERINDOPRIL ARGININE
     Indication: EJECTION FRACTION DECREASED
     Route: 048
     Dates: start: 20090316, end: 20090323
  8. TIANEPTINE [Suspect]
     Active Substance: TIANEPTINE
     Indication: DEPRESSION
     Route: 065
  9. TAMOXIFEN [Concomitant]
     Active Substance: TAMOXIFEN
     Indication: BREAST CANCER
     Route: 048
     Dates: start: 20080918, end: 20090323
  10. CYCLOPHOSPHAMIDE. [Concomitant]
     Active Substance: CYCLOPHOSPHAMIDE
     Indication: BREAST CANCER
     Dosage: DOSE: 500 M/M2, FREQUENCY: CYCLE OF 21/ 21 DAYS,
     Route: 042
     Dates: start: 200804, end: 200807
  11. HERCEPTIN [Suspect]
     Active Substance: TRASTUZUMAB
     Indication: BREAST CANCER
     Dosage: HERCEPTIN POWDER FOR CONCENTRATE FOR SOLUTION FOR INFUSION - 150 MG
     Route: 041
     Dates: start: 20081008, end: 20090309

REACTIONS (5)
  - Sudden death [Fatal]
  - Ejection fraction decreased [Fatal]
  - Depression [Unknown]
  - Left atrial enlargement [Fatal]
  - Arrhythmia [Fatal]

NARRATIVE: CASE EVENT DATE: 200901
